FAERS Safety Report 9182823 (Version 1)
Quarter: 2012Q4

REPORT INFORMATION
  Report Type: 
  Country: US (occurrence: US)
  Receive Date: 20121031
  Receipt Date: 20121031
  Transmission Date: 20130627
  Serious: Yes (Other)
  Sender: FDA-Public Use
  Company Number: US-BAYER-2012-111583

PATIENT
  Age: 67 Year
  Sex: Female

DRUGS (1)
  1. MIRENA [Suspect]
     Indication: GENITAL BLEEDING
     Dosage: 20 mcg/24hr, CONT
     Route: 015
     Dates: start: 20121011

REACTIONS (2)
  - Genital haemorrhage [Recovering/Resolving]
  - Abdominal pain lower [None]
